FAERS Safety Report 7384708-4 (Version None)
Quarter: 2011Q1

REPORT INFORMATION
  Report Type: 
  Country: None (occurrence: None)
  Receive Date: 20110330
  Receipt Date: 20110322
  Transmission Date: 20110831
  Serious: Yes (Death, Other)
  Sender: FDA-Public Use
  Company Number: PHHY2011US07183

PATIENT
  Sex: Male
  Weight: 50 kg

DRUGS (6)
  1. CARBATROL [Concomitant]
     Dosage: 300 MG, DAILY
     Route: 048
     Dates: start: 20050101
  2. EXJADE [Suspect]
     Indication: SICKLE CELL ANAEMIA
     Dosage: 1500 MG, DAILY
     Route: 048
     Dates: start: 19970101
  3. RED BLOOD CELLS, CONCENTRATED [Concomitant]
  4. ASPIRIN [Concomitant]
     Dosage: 1 DF, QD
     Route: 048
  5. EXJADE [Suspect]
     Dosage: 1750 MG, UNK
     Route: 048
  6. PCM [Concomitant]
     Dosage: 250 MG, BID
     Route: 048

REACTIONS (7)
  - TACHYCARDIA [None]
  - TACHYPNOEA [None]
  - HAEMOGLOBIN DECREASED [None]
  - HAEMOCHROMATOSIS [None]
  - BILE DUCT OBSTRUCTION [None]
  - SICKLE CELL ANAEMIA WITH CRISIS [None]
  - MENTAL STATUS CHANGES [None]
